FAERS Safety Report 9972333 (Version 1)
Quarter: 2014Q1

REPORT INFORMATION
  Report Type: Spontaneous
  Country: US (occurrence: None)
  Receive Date: 20140305
  Receipt Date: 20140305
  Transmission Date: 20141002
  Serious: Yes (Other)
  Sender: FDA-Public Use
  Company Number: None

PATIENT
  Age: 56 Year
  Sex: Male

DRUGS (6)
  1. FLUTICASONE 17MCG [Suspect]
     Route: 045
  2. ALBUTEROL SULFATE (VENTOLIN) [Concomitant]
  3. AMLODIPINE BESYLATE (NORVASC) [Concomitant]
  4. HYDROCHLOROTHIAZIDE (MICROZIDE) [Concomitant]
  5. BRIMONIDINE TARTRATE (ALPHAGAN) [Concomitant]
  6. BIMATOPROST OPHTHALMIC 0.01% (LUMIGAN) [Concomitant]

REACTIONS (6)
  - Anaphylactic reaction [None]
  - Dyspnoea [None]
  - Tachycardia [None]
  - Paraesthesia [None]
  - Hyperhidrosis [None]
  - Dizziness [None]
